FAERS Safety Report 6308954-3 (Version None)
Quarter: 2009Q3

REPORT INFORMATION
  Report Type: 
  Country: None (occurrence: None)
  Receive Date: 20090813
  Receipt Date: 20090724
  Transmission Date: 20100115
  Serious: No
  Sender: FDA-Public Use
  Company Number: US-ALLERGAN-0910395US

PATIENT
  Age: 66 Year
  Sex: Female

DRUGS (4)
  1. COMBIGAN [Suspect]
     Indication: GLAUCOMA
     Dosage: UNK, UNKNOWN
     Route: 047
     Dates: start: 20081101
  2. EVISTA [Concomitant]
  3. FOSAMAX [Concomitant]
  4. NEXIUM [Concomitant]

REACTIONS (2)
  - EYE IRRITATION [None]
  - EYELIDS PRURITUS [None]
